FAERS Safety Report 6919996-9 (Version None)
Quarter: 2010Q3

REPORT INFORMATION
  Report Type: 
  Country: None (occurrence: None)
  Receive Date: 20100809
  Receipt Date: 20100723
  Transmission Date: 20110219
  Serious: Yes (Life-Threatening, Hospitalization)
  Sender: FDA-Public Use
  Company Number: DSA_43612_2010

PATIENT
  Age: 85 Year
  Sex: Male

DRUGS (7)
  1. MONO-TILDIEM - DILITIAZEM [Suspect]
     Indication: CARDIAC FAILURE
     Dosage: DF, ORAL
     Route: 048
  2. CORDARONE [Suspect]
     Indication: CARDIAC FAILURE
     Dosage: DF,
     Dates: start: 20100423
  3. TEMERIT (TEMERIT - NEBIVOLOL) 5MG (NOT SPECIFIED) [Suspect]
     Indication: CARDIAC FAILURE
     Dosage: 5 MG, QD, ORAL
     Route: 048
  4. PREVISCAN [Concomitant]
  5. COZAAR [Concomitant]
  6. FLUTICASONE PROPIONATE W/SALMETEROL [Concomitant]
  7. DIFFU K [Concomitant]

REACTIONS (5)
  - CARDIO-RESPIRATORY ARREST [None]
  - COMA [None]
  - MYOCARDITIS [None]
  - TORSADE DE POINTES [None]
  - VENTRICULAR TACHYCARDIA [None]
